FAERS Safety Report 7169685-3 (Version None)
Quarter: 2010Q4

REPORT INFORMATION
  Report Type: 
  Country: None (occurrence: None)
  Receive Date: 20101217
  Receipt Date: 20101209
  Transmission Date: 20110411
  Serious: Yes (Other)
  Sender: FDA-Public Use
  Company Number: JP-JNJFOC-20101204081

PATIENT

DRUGS (12)
  1. DUROTEP MT [Suspect]
     Indication: CANCER PAIN
     Route: 062
  2. TPN [Suspect]
     Indication: ILL-DEFINED DISORDER
     Route: 048
  3. ISOTONIC SODIUM CHLORIDE SOLUTION [Suspect]
     Indication: ILL-DEFINED DISORDER
     Route: 042
  4. FAMOTIDINE [Concomitant]
     Route: 048
  5. TS-1 [Concomitant]
     Route: 048
  6. OMEPRAZOLE [Concomitant]
     Route: 041
  7. SOLDEM 3A [Concomitant]
     Route: 065
  8. BICARBONATE [Concomitant]
     Route: 065
  9. MAGNESIUM OXIDE [Concomitant]
     Route: 048
  10. MAGNESIUM OXIDE [Concomitant]
     Route: 048
  11. THYRADIN S [Concomitant]
     Route: 048
  12. KETOPROFEN [Concomitant]
     Route: 062

REACTIONS (1)
  - BLOOD SODIUM INCREASED [None]
